FAERS Safety Report 12799144 (Version 1)
Quarter: 2016Q3

REPORT INFORMATION
  Report Type: Spontaneous
  Country: BR (occurrence: BR)
  Receive Date: 20160930
  Receipt Date: 20160930
  Transmission Date: 20161109
  Serious: Yes (Other)
  Sender: FDA-Public Use
  Company Number: BR-ELI_LILLY_AND_COMPANY-BR201609009116

PATIENT
  Age: 69 Year
  Sex: Female
  Weight: 75 kg

DRUGS (10)
  1. HUMULIN N [Suspect]
     Active Substance: INSULIN HUMAN
     Indication: DIABETES MELLITUS
     Dosage: 26 IU, EACH MORNING
     Route: 065
     Dates: start: 2006
  2. HUMULIN N [Suspect]
     Active Substance: INSULIN HUMAN
     Dosage: 26 IU, EACH MORNING
     Route: 065
  3. HUMULIN N [Suspect]
     Active Substance: INSULIN HUMAN
     Dosage: 28 IU, EACH EVENING
     Route: 065
  4. HUMULIN R [Suspect]
     Active Substance: INSULIN HUMAN
     Indication: DIABETES MELLITUS
     Dosage: UNK, TID
     Route: 065
     Dates: start: 2006
  5. HUMULIN N [Suspect]
     Active Substance: INSULIN HUMAN
     Dosage: 28 IU, EACH EVENING
     Route: 065
     Dates: start: 2006
  6. HUMULIN N [Suspect]
     Active Substance: INSULIN HUMAN
     Dosage: 32 IU, OTHER AT LUNCH
     Route: 065
  7. LOSARTANA POTASSICA [Concomitant]
     Active Substance: LOSARTAN
     Indication: PROPHYLAXIS
     Dosage: UNK, UNKNOWN
  8. HUMULIN N [Suspect]
     Active Substance: INSULIN HUMAN
     Dosage: 32 IU, OTHER AT LUNCH
     Route: 065
     Dates: start: 2006
  9. GLIFAGE [Concomitant]
     Active Substance: METFORMIN HYDROCHLORIDE
     Indication: PRODUCT USED FOR UNKNOWN INDICATION
     Dosage: UNK, UNKNOWN
  10. SINVASTATINA [Concomitant]
     Active Substance: SIMVASTATIN
     Indication: PRODUCT USED FOR UNKNOWN INDICATION
     Dosage: UNK, UNKNOWN

REACTIONS (6)
  - Injection site pain [Unknown]
  - Blood glucose increased [Recovered/Resolved]
  - Pain in extremity [Not Recovered/Not Resolved]
  - Visual impairment [Not Recovered/Not Resolved]
  - Musculoskeletal disorder [Not Recovered/Not Resolved]
  - Blood pressure increased [Recovered/Resolved]

NARRATIVE: CASE EVENT DATE: 201509
